FAERS Safety Report 8568638 (Version 3)
Quarter: 2013Q1

REPORT INFORMATION
  Report Type: Report from Study
  Country: JP (occurrence: JP)
  Receive Date: 20120518
  Receipt Date: 20130130
  Transmission Date: 20140127
  Serious: Yes (Other)
  Sender: FDA-Public Use
  Company Number: JP-VERTEX PHARMACEUTICALS INC.-AE-2012-007092

PATIENT
  Age: 58 Year
  Sex: Female

DRUGS (13)
  1. VX-950 (TELAPREVIR) [Suspect]
     Indication: CHRONIC HEPATITIS C
     Dosage: 2250 MG, QD
     Route: 048
     Dates: start: 20120321, end: 20120612
  2. REBETOL [Suspect]
     Indication: CHRONIC HEPATITIS C
     Dosage: 600 MG, QD
     Route: 048
     Dates: start: 20120321, end: 20120508
  3. REBETOL [Suspect]
     Dosage: 400 MG, QD
     Route: 048
     Dates: start: 20120509, end: 20120529
  4. REBETOL [Suspect]
     Dosage: 200 MG, QD
     Route: 048
     Dates: start: 20120530
  5. PEGINTRON [Suspect]
     Indication: CHRONIC HEPATITIS C
     Dosage: 1.5 ?G/KG, QW
     Route: 058
     Dates: start: 20120321, end: 20120321
  6. PEGINTRON [Suspect]
     Dosage: 60 ?G, QW
     Route: 058
     Dates: start: 20120328
  7. AMLODIPINE [Concomitant]
     Dosage: 2.5 MG, QD
     Route: 048
  8. FASTIC [Concomitant]
     Dosage: 270 MG, QD
     Route: 048
  9. ARTIST [Concomitant]
     Dosage: 10 MG, QD
     Route: 048
  10. FERRUM [Concomitant]
     Dosage: 100 MG, QD
     Route: 048
  11. GASMOTIN [Concomitant]
     Dosage: 15 MG, QD
     Route: 048
  12. MAGMITT [Concomitant]
     Dosage: 990 MG, QD
     Route: 048
  13. CALONAL [Concomitant]
     Dosage: 400 MG, QD
     Route: 048
     Dates: start: 20120321

REACTIONS (1)
  - Neutrophil count decreased [Recovered/Resolved]
